FAERS Safety Report 12283895 (Version 1)
Quarter: 2016Q2

REPORT INFORMATION
  Report Type: Spontaneous
  Country: US (occurrence: US)
  Receive Date: 20160419
  Receipt Date: 20160419
  Transmission Date: 20160815
  Serious: No
  Sender: FDA-Public Use
  Company Number: US-BANPHARM-20154392

PATIENT
  Age: 36 Year
  Sex: Female
  Weight: 86.18 kg

DRUGS (3)
  1. DEPRESSIN MEDICATION [Concomitant]
  2. ALKA-SELTZER PLUS NIGHT COLD FORMULA (LEMON) [Suspect]
     Active Substance: ASPIRIN\DEXTROMETHORPHAN HYDROBROMIDE\DOXYLAMINE SUCCINATE\PHENYLEPHRINE BITARTRATE
     Indication: NASAL CONGESTION
  3. ALEVE [Suspect]
     Active Substance: NAPROXEN SODIUM
     Indication: HEADACHE
     Dosage: 2 DF, ONCE DAILY,
     Route: 048
     Dates: start: 20151022, end: 20151102

REACTIONS (2)
  - Drug ineffective [Unknown]
  - Incorrect drug administration duration [Unknown]

NARRATIVE: CASE EVENT DATE: 20151022
